FAERS Safety Report 12778598 (Version 1)
Quarter: 2016Q3

REPORT INFORMATION
  Report Type: Spontaneous
  Country: US (occurrence: US)
  Receive Date: 20160926
  Receipt Date: 20160926
  Transmission Date: 20161109
  Serious: No
  Sender: FDA-Public Use
  Company Number: US-ASTRAZENECA-2016SF01614

PATIENT
  Sex: Female

DRUGS (2)
  1. NEXIUM 24HR [Suspect]
     Active Substance: ESOMEPRAZOLE MAGNESIUM
     Dosage: 3 TIMES PER WEEK
     Route: 048
  2. NEXIUM 24HR [Suspect]
     Active Substance: ESOMEPRAZOLE MAGNESIUM
     Dosage: EVERY DAY FOR ABOUT 3 OR 4 DAYS
     Route: 048

REACTIONS (4)
  - Drug ineffective [Unknown]
  - Nausea [Recovering/Resolving]
  - Product use issue [Unknown]
  - Discomfort [Unknown]
